FAERS Safety Report 7236049-3 (Version None)
Quarter: 2011Q1

REPORT INFORMATION
  Report Type: 
  Country: None (occurrence: None)
  Receive Date: 20110120
  Receipt Date: 20110111
  Transmission Date: 20110831
  Serious: Yes (Other)
  Sender: FDA-Public Use
  Company Number: ES-JNJFOC-20110103945

PATIENT
  Age: 45 Year
  Sex: Male

DRUGS (4)
  1. NORVIR [Concomitant]
     Indication: HIV INFECTION
     Route: 065
  2. TRUVADA [Concomitant]
     Indication: HIV INFECTION
     Route: 065
  3. PREZISTA [Suspect]
     Indication: HIV INFECTION
     Route: 065
  4. ATAZANAVIR [Suspect]
     Indication: HIV INFECTION
     Route: 065

REACTIONS (1)
  - RENAL COLIC [None]
